FAERS Safety Report 6433820-2 (Version None)
Quarter: 2009Q4

REPORT INFORMATION
  Report Type: 
  Country: None (occurrence: None)
  Receive Date: 20091106
  Receipt Date: 20091106
  Transmission Date: 20100525
  Serious: Yes (Hospitalization)
  Sender: FDA-Public Use
  Company Number: None

PATIENT
  Age: 20 Year
  Sex: Male
  Weight: 30.8446 kg

DRUGS (2)
  1. DEXTROMETHORPHAN HYDROBROMIDE [Suspect]
     Indication: UPPER RESPIRATORY TRACT INFECTION
     Dosage: 900 MG ONCE PO
     Route: 048
     Dates: start: 20090912, end: 20090912
  2. CHLORPHENIRAMINE/DEXTROMETHORPHAN [Suspect]
     Indication: UPPER RESPIRATORY TRACT INFECTION
     Dosage: 480 MG ONCE PO
     Route: 048
     Dates: start: 20090912, end: 20090912

REACTIONS (2)
  - OVERDOSE [None]
  - TACHYCARDIA [None]
